FAERS Safety Report 21059192 (Version 8)
Quarter: 2022Q4

REPORT INFORMATION
  Report Type: Report from Study
  Country: CA (occurrence: CA)
  Receive Date: 20220708
  Receipt Date: 20221208
  Transmission Date: 20230112
  Serious: Yes (Hospitalization, Other)
  Sender: FDA-Public Use
  Company Number: CA-BRISTOL-MYERS SQUIBB COMPANY-BMS-2021-144194

PATIENT
  Age: 81 Year
  Sex: Female
  Weight: 75.30 kg

DRUGS (4)
  1. ORENCIA [Suspect]
     Active Substance: ABATACEPT
     Indication: Rheumatoid arthritis
     Dosage: 4 WEEKS
     Route: 042
     Dates: start: 20220913
  2. ORENCIA [Suspect]
     Active Substance: ABATACEPT
     Dosage: EXPIRY DATE: 31-MAY-2024
     Route: 042
     Dates: start: 20211216
  3. ORENCIA [Suspect]
     Active Substance: ABATACEPT
     Route: 042
  4. ORENCIA [Suspect]
     Active Substance: ABATACEPT
     Route: 042
     Dates: start: 20220105

REACTIONS (11)
  - Pneumonia [Unknown]
  - Illness [Unknown]
  - Dyspnoea [Unknown]
  - Inappropriate schedule of product administration [Not Recovered/Not Resolved]
  - Blood pressure systolic increased [Recovered/Resolved]
  - Blood pressure diastolic increased [Not Recovered/Not Resolved]
  - Infection [Unknown]
  - Weight increased [Not Recovered/Not Resolved]
  - Off label use [Unknown]
  - Influenza like illness [Recovered/Resolved]
  - Influenza [Recovered/Resolved]

NARRATIVE: CASE EVENT DATE: 20220101
